FAERS Safety Report 9292205 (Version 1)
Quarter: 2012Q4

REPORT INFORMATION
  Report Type: Spontaneous
  Country: US (occurrence: None)
  Receive Date: 20121009
  Receipt Date: 20121009
  Transmission Date: 20130627
  Serious: Yes (Other)
  Sender: FDA-Public Use
  Company Number: 2011MA007913

PATIENT
  Sex: Female
  Weight: 54.43 kg

DRUGS (6)
  1. METOCLOPRAMIDE TABLETS USP, 10 MG (PUREPAC) [Suspect]
     Indication: NAUSEA
     Dosage: PRN
     Route: 048
     Dates: start: 20070413, end: 20081015
  2. ADVAIR [Concomitant]
  3. ALBUTEROL [Concomitant]
  4. ALPRAZOLAM [Concomitant]
  5. AMITRIPTYLINE [Concomitant]
  6. AMOXICILLIN-CLAVULANATE [Concomitant]

REACTIONS (18)
  - Extrapyramidal disorder [None]
  - Tremor [None]
  - Restless legs syndrome [None]
  - Economic problem [None]
  - Family stress [None]
  - Movement disorder [None]
  - Morton^s neuroma [None]
  - Pancreatitis [None]
  - Tardive dyskinesia [None]
  - Convulsion [None]
  - Unevaluable event [None]
  - Visual impairment [None]
  - Abdominal pain [None]
  - Nausea [None]
  - Vomiting [None]
  - Cough [None]
  - Weight decreased [None]
  - Abdominal tenderness [None]
